FAERS Safety Report 14393361 (Version 1)
Quarter: 2018Q1

REPORT INFORMATION
  Report Type: Spontaneous
  Country: US (occurrence: US)
  Receive Date: 20180116
  Receipt Date: 20180116
  Transmission Date: 20180509
  Serious: No
  Sender: FDA-Public Use
  Company Number: US-BAYER-2018-003870

PATIENT
  Age: 60 Year
  Sex: Female
  Weight: 64 kg

DRUGS (1)
  1. ALEVE [Suspect]
     Active Substance: NAPROXEN SODIUM
     Indication: NERVE INJURY
     Dosage: 1 CAPLET TWICE DAILY
     Route: 048
     Dates: start: 20171221, end: 20180102

REACTIONS (4)
  - Product prescribing issue [Unknown]
  - Drug prescribing error [Unknown]
  - Product use issue [Unknown]
  - Product use in unapproved indication [Unknown]

NARRATIVE: CASE EVENT DATE: 20171221
